FAERS Safety Report 9405696 (Version 1)
Quarter: 2013Q3

REPORT INFORMATION
  Report Type: Spontaneous
  Country: GB (occurrence: GB)
  Receive Date: 20130717
  Receipt Date: 20130717
  Transmission Date: 20140515
  Serious: Yes (Hospitalization)
  Sender: FDA-Public Use
  Company Number: GB-ACTAVIS-2013-12780

PATIENT
  Sex: 0

DRUGS (4)
  1. DONEPEZIL HYDROCHLORIDE (UNKNOWN) [Suspect]
     Indication: DEMENTIA
     Dosage: 10 MG, UNKNOWN
     Route: 048
     Dates: start: 200804, end: 20130522
  2. DONEPEZIL HYDROCHLORIDE (UNKNOWN) [Suspect]
     Dosage: 5 MG, UNKNOWN
     Route: 048
     Dates: start: 200802
  3. BENDROFLUMETHIAZIDE [Concomitant]
     Indication: HYPERTENSION
     Dosage: 2.5 MG, UNKNOWN
     Route: 065
  4. SIMVASTATIN [Concomitant]
     Indication: HYPERCHOLESTEROLAEMIA
     Dosage: 40 MG, UNKNOWN
     Route: 065

REACTIONS (3)
  - Electrocardiogram QT prolonged [Unknown]
  - Atrioventricular block first degree [Unknown]
  - Heart rate decreased [Unknown]
